FAERS Safety Report 17804093 (Version 3)
Quarter: 2020Q2

REPORT INFORMATION
  Report Type: Spontaneous
  Country: US (occurrence: US)
  Receive Date: 20200519
  Receipt Date: 20200615
  Transmission Date: 20200714
  Serious: Yes (Hospitalization, Other)
  Sender: FDA-Public Use
  Company Number: US-GLAXOSMITHKLINE-US2020AMR083015

PATIENT
  Sex: Female

DRUGS (1)
  1. ZEJULA [Suspect]
     Active Substance: NIRAPARIB
     Indication: OVARIAN CANCER
     Dosage: 100 MG, QD
     Dates: start: 20200505, end: 20200605

REACTIONS (9)
  - Cardiac failure congestive [Unknown]
  - Blood sodium decreased [Unknown]
  - Hypoxia [Unknown]
  - Dyspnoea [Unknown]
  - Malignant neoplasm progression [Unknown]
  - Terminal state [Unknown]
  - Underdose [Unknown]
  - Hospice care [Unknown]
  - Blood potassium decreased [Unknown]
